FAERS Safety Report 12255735 (Version 1)
Quarter: 2016Q2

REPORT INFORMATION
  Report Type: Spontaneous
  Country: US (occurrence: None)
  Receive Date: 20160411
  Receipt Date: 20160411
  Transmission Date: 20160815
  Serious: Yes (Life-Threatening)
  Sender: FDA-Public Use
  Company Number: None

PATIENT
  Age: 70 Year
  Sex: Male
  Weight: 107.05 kg

DRUGS (14)
  1. DAILY MULTIVITAMIN [Concomitant]
     Active Substance: VITAMINS
  2. OMEPREZOL [Concomitant]
  3. UBIQUINOL [Concomitant]
     Active Substance: UBIQUINOL
  4. KRILL OIL [Concomitant]
     Active Substance: DIETARY SUPPLEMENT
  5. METAPROLOL [Concomitant]
     Active Substance: METOPROLOL
  6. INSULIN [Concomitant]
     Active Substance: INSULIN NOS
  7. VALSARTAN. [Concomitant]
     Active Substance: VALSARTAN
  8. METFORMIN [Concomitant]
     Active Substance: METFORMIN HYDROCHLORIDE
  9. LIPITOR [Concomitant]
     Active Substance: ATORVASTATIN CALCIUM
  10. CALCIUM CITRATE [Concomitant]
     Active Substance: CALCIUM CITRATE
  11. ZINC SUPPLEMENT [Concomitant]
  12. MAGNESIUM [Concomitant]
     Active Substance: MAGNESIUM
  13. JARDIANCE [Suspect]
     Active Substance: EMPAGLIFLOZIN
     Indication: BLOOD GLUCOSE INCREASED
     Dosage: 1 TABLET ONCE A DAY
     Route: 048
  14. HCTZ [Concomitant]
     Active Substance: HYDROCHLOROTHIAZIDE

REACTIONS (2)
  - Urinary tract infection [None]
  - No therapeutic response [None]

NARRATIVE: CASE EVENT DATE: 20160406
